FAERS Safety Report 6680950-6 (Version None)
Quarter: 2010Q2

REPORT INFORMATION
  Report Type: 
  Country: None (occurrence: None)
  Receive Date: 20100414
  Receipt Date: 20100405
  Transmission Date: 20101027
  Serious: Yes (Other)
  Sender: FDA-Public Use
  Company Number: US-GENZYME-CLOF-1000884

PATIENT
  Sex: Female
  Weight: 27.1 kg

DRUGS (10)
  1. CLOLAR [Suspect]
     Indication: ACUTE MYELOID LEUKAEMIA
     Dosage: 40 MG/M2, QDX5
     Route: 042
     Dates: start: 20100102, end: 20100106
  2. TOPOTECAN [Suspect]
     Indication: ACUTE MYELOID LEUKAEMIA
     Dosage: 1 MG/M2, QDX5
     Route: 042
     Dates: start: 20091230, end: 20100103
  3. VINORELBINE [Suspect]
     Indication: ACUTE MYELOID LEUKAEMIA
     Dosage: 2 MG/M2, QD
     Route: 042
     Dates: start: 20091230, end: 20091230
  4. VINORELBINE [Suspect]
     Dosage: 2 MG/M2, QD
     Route: 042
     Dates: start: 20100106, end: 20100106
  5. VINORELBINE [Suspect]
     Dosage: 2 MG/M2, QD
     Route: 042
     Dates: start: 20100113, end: 20100113
  6. THIOTEPA [Suspect]
     Indication: ACUTE MYELOID LEUKAEMIA
     Dosage: 15 MG/M2, QD
     Route: 042
     Dates: start: 20100101, end: 20100101
  7. DEXAMETHASONE [Suspect]
     Indication: ACUTE MYELOID LEUKAEMIA
     Dosage: UNK UNK, UNK
     Route: 042
     Dates: start: 20100101
  8. SYNTHROID [Concomitant]
     Indication: GOITRE
     Dosage: UNK UNK, UNK
     Route: 065
  9. FRESH FROZEN PLASMA [Concomitant]
     Indication: BLOOD FIBRINOGEN DECREASED
     Dosage: UNK UNK, UNK
     Route: 065
     Dates: start: 20091001
  10. ACYCLOVIR [Concomitant]
     Indication: HERPES ZOSTER
     Dosage: UNK
     Dates: start: 20091201

REACTIONS (4)
  - APPENDICITIS [None]
  - DEVICE RELATED INFECTION [None]
  - FEBRILE NEUTROPENIA [None]
  - GASTROINTESTINAL FUNGAL INFECTION [None]
